FAERS Safety Report 19483663 (Version 1)
Quarter: 2021Q3

REPORT INFORMATION
  Report Type: Spontaneous
  Country: US (occurrence: US)
  Receive Date: 20210701
  Receipt Date: 20210701
  Transmission Date: 20211014
  Serious: Yes (Other)
  Sender: FDA-Public Use
  Company Number: US-BIODELIVERY SCIENCES INTERNATIONAL-2020BDSI0737

PATIENT
  Age: 49 Year
  Sex: Male
  Weight: 163.44 kg

DRUGS (1)
  1. BUPRENORPHINE. [Suspect]
     Active Substance: BUPRENORPHINE
     Indication: PAIN
     Route: 002
     Dates: start: 20201208

REACTIONS (5)
  - Drug withdrawal syndrome [Recovered/Resolved]
  - Product administration error [Recovered/Resolved]
  - Product physical consistency issue [Unknown]
  - Drug ineffective [Unknown]
  - Oral administration complication [Unknown]

NARRATIVE: CASE EVENT DATE: 202012
